FAERS Safety Report 19808626 (Version 24)
Quarter: 2025Q1

REPORT INFORMATION
  Report Type: Report from Study
  Country: US (occurrence: US)
  Receive Date: 20210908
  Receipt Date: 20250310
  Transmission Date: 20250409
  Serious: Yes (Other)
  Sender: TAKEDA
  Company Number: US-TAKEDA-2021TUS049824

PATIENT
  Age: 74 Year
  Sex: Female
  Weight: 93 kg

DRUGS (42)
  1. .ALPHA.1-PROTEINASE INHIBITOR HUMAN [Suspect]
     Active Substance: .ALPHA.1-PROTEINASE INHIBITOR HUMAN
     Indication: Alpha-1 antitrypsin deficiency
     Dosage: UNK UNK, 1/WEEK
     Dates: start: 20210621
  2. .ALPHA.1-PROTEINASE INHIBITOR HUMAN [Suspect]
     Active Substance: .ALPHA.1-PROTEINASE INHIBITOR HUMAN
     Dosage: 5200 MILLIGRAM, 1/WEEK
  3. .ALPHA.1-PROTEINASE INHIBITOR HUMAN [Suspect]
     Active Substance: .ALPHA.1-PROTEINASE INHIBITOR HUMAN
     Dosage: 60 MILLIGRAM/KILOGRAM, 1/WEEK
     Dates: start: 20210720
  4. .ALPHA.1-PROTEINASE INHIBITOR HUMAN [Suspect]
     Active Substance: .ALPHA.1-PROTEINASE INHIBITOR HUMAN
     Dosage: 60 MILLIGRAM/KILOGRAM, 1/WEEK
  5. DIPHENHYDRAMINE [Concomitant]
     Active Substance: DIPHENHYDRAMINE
  6. SYMBICORT [Concomitant]
     Active Substance: BUDESONIDE\FORMOTEROL FUMARATE DIHYDRATE
  7. PNEUMOVAX 23 [Concomitant]
     Active Substance: PNEUMOCOCCAL VACCINE, POLYVALENT 23
  8. METOPROLOL TARTRATE [Concomitant]
     Active Substance: METOPROLOL TARTRATE
  9. EPINEPHRINE [Concomitant]
     Active Substance: EPINEPHRINE
  10. SODIUM CHLORIDE [Concomitant]
     Active Substance: SODIUM CHLORIDE
  11. ZYRTEC [Concomitant]
     Active Substance: CETIRIZINE HYDROCHLORIDE
  12. TRAMADOL HCL [Concomitant]
     Active Substance: TRAMADOL HYDROCHLORIDE
  13. TYLENOL EXTRA STRENGTH [Concomitant]
     Active Substance: ACETAMINOPHEN
  14. ALBUTEROL SULFATE\IPRATROPIUM BROMIDE [Concomitant]
     Active Substance: ALBUTEROL SULFATE\IPRATROPIUM BROMIDE
  15. FERROUS SULFATE [Concomitant]
     Active Substance: FERROUS SULFATE
  16. GABAPENTIN [Concomitant]
     Active Substance: GABAPENTIN
  17. LISINOPRIL [Concomitant]
     Active Substance: LISINOPRIL
  18. LEXAPRO [Concomitant]
     Active Substance: ESCITALOPRAM OXALATE
  19. NIACIN [Concomitant]
     Active Substance: NIACIN
  20. ASPIRIN [Concomitant]
     Active Substance: ASPIRIN
  21. OMEPRAZOLE [Concomitant]
     Active Substance: OMEPRAZOLE
  22. FISH OIL [Concomitant]
     Active Substance: FISH OIL
  23. KETOTIFEN FUMARATE [Concomitant]
     Active Substance: KETOTIFEN FUMARATE
  24. PROAIR HFA [Concomitant]
     Active Substance: ALBUTEROL SULFATE
  25. FLUAD QUADRIVALENT NOS [Concomitant]
     Active Substance: INFLUENZA A VIRUS A/HONG KONG/2671/2019 IVR-208 (H3N2) ANTIGEN (FORMALDEHYDE INACTIVATED)\INFLUENZA
  26. ARIPIPRAZOLE [Concomitant]
     Active Substance: ARIPIPRAZOLE
  27. Quadel [Concomitant]
  28. Meprazole [Concomitant]
  29. HYDROCODONE [Concomitant]
     Active Substance: HYDROCODONE
  30. ACETAMINOPHEN [Concomitant]
     Active Substance: ACETAMINOPHEN
  31. IPRATROPIUM [Concomitant]
     Active Substance: IPRATROPIUM
  32. ESCITALOPRAM OXALATE [Concomitant]
     Active Substance: ESCITALOPRAM OXALATE
  33. REFRESH OPTIVE [Concomitant]
     Active Substance: CARBOXYMETHYLCELLULOSE SODIUM\GLYCERIN
  34. PATADAY [Concomitant]
     Active Substance: OLOPATADINE HYDROCHLORIDE
     Dosage: UNK UNK, QD
  35. METFORMIN HYDROCHLORIDE [Concomitant]
     Active Substance: METFORMIN HYDROCHLORIDE
     Indication: Product used for unknown indication
  36. ALBUTEROL\IPRATROPIUM [Concomitant]
     Active Substance: ALBUTEROL\IPRATROPIUM
  37. HEPARIN [Concomitant]
     Active Substance: HEPARIN SODIUM
  38. VITAMIN D3 [Concomitant]
     Active Substance: CHOLECALCIFEROL
  39. DIPHENHYDRAMINE HYDROCHLORIDE [Concomitant]
     Active Substance: DIPHENHYDRAMINE HYDROCHLORIDE
  40. VITAMIN E [Concomitant]
     Active Substance: .ALPHA.-TOCOPHEROL
  41. LIDOCAINE [Concomitant]
     Active Substance: LIDOCAINE
  42. ZOLOFT [Concomitant]
     Active Substance: SERTRALINE HYDROCHLORIDE

REACTIONS (29)
  - Bipolar disorder [Unknown]
  - Insurance issue [Unknown]
  - Poor venous access [Unknown]
  - Weight increased [Unknown]
  - Depression [Unknown]
  - Vertigo [Unknown]
  - Foot fracture [Unknown]
  - Fall [Unknown]
  - Tenderness [Unknown]
  - Contusion [Unknown]
  - Peripheral swelling [Unknown]
  - Pain [Unknown]
  - Arthralgia [Unknown]
  - Musculoskeletal chest pain [Unknown]
  - Productive cough [Unknown]
  - Pain in extremity [Unknown]
  - Influenza [Unknown]
  - Product use issue [Unknown]
  - Respiratory disorder [Recovering/Resolving]
  - Sinusitis [Unknown]
  - Asthenia [Unknown]
  - Diarrhoea [Recovering/Resolving]
  - Malaise [Unknown]
  - Bronchitis [Unknown]
  - Back pain [Unknown]
  - Dizziness [Unknown]
  - Cough [Unknown]
  - Dyspnoea [Unknown]
  - Upper respiratory tract infection [Unknown]

NARRATIVE: CASE EVENT DATE: 20220130
